FAERS Safety Report 5019415-6 (Version None)
Quarter: 2006Q2

REPORT INFORMATION
  Report Type: 
  Country: None (occurrence: None)
  Receive Date: 20060531
  Receipt Date: 20060519
  Transmission Date: 20061013
  Serious: Yes (Hospitalization, Other)
  Sender: FDA-Public Use
  Company Number: HQWYE516124MAY06

PATIENT
  Age: 50 Year
  Sex: Male

DRUGS (3)
  1. RAPAMUNE [Suspect]
     Indication: PROPHYLAXIS AGAINST TRANSPLANT REJECTION
     Dosage: 6 MG 1X PER 1 DAY
     Route: 048
     Dates: start: 20060321
  2. MEPREDNISONE [Concomitant]
  3. MYCOPHENOLATE MOFETIL [Concomitant]

REACTIONS (4)
  - BLOOD CREATININE INCREASED [None]
  - BLOOD UREA DECREASED [None]
  - HERNIA [None]
  - SMALL INTESTINAL OBSTRUCTION [None]
